FAERS Safety Report 7628766-8 (Version None)
Quarter: 2011Q3

REPORT INFORMATION
  Report Type: 
  Country: None (occurrence: None)
  Receive Date: 20110722
  Receipt Date: 20110715
  Transmission Date: 20111222
  Serious: Yes (Hospitalization, Other)
  Sender: FDA-Public Use
  Company Number: US-BAYER-201029045NA

PATIENT
  Age: 46 Year
  Sex: Female
  Weight: 69.388 kg

DRUGS (16)
  1. YASMIN [Suspect]
     Indication: METRORRHAGIA
     Dosage: UNK UNK, UNK
     Route: 048
     Dates: start: 20090401, end: 20090701
  2. MEPERIDINE HCL [Concomitant]
     Dosage: UNK
     Dates: start: 20090627
  3. LEVOFLOXACIN [Concomitant]
     Dosage: UNK
     Dates: start: 20090630
  4. TYLENOL-500 [Concomitant]
     Indication: DYSMENORRHOEA
     Dosage: UNK UNK, Q1MON
     Dates: start: 19970101
  5. FLUOCINONIDE [Concomitant]
     Dosage: UNK
     Dates: start: 20090528
  6. OATMEAL [Concomitant]
     Dosage: UNK
     Dates: start: 20090608
  7. ALPRAZOLAM [Concomitant]
     Indication: ANXIETY DISORDER
     Dosage: UNK
     Dates: start: 20080821, end: 20090919
  8. SINGULAIR [Concomitant]
     Indication: SEASONAL ALLERGY
     Dosage: UNK
     Dates: start: 20030101, end: 20090101
  9. HYDROXYZINE HCL [Concomitant]
     Dosage: UNK
     Dates: start: 20090528
  10. CETIRIZINE HCL [Concomitant]
     Dosage: UNK
     Dates: start: 20090605
  11. PHENAZOPYRIDINE HCL TAB [Concomitant]
     Dosage: UNK
     Dates: start: 20090629
  12. SARNA [Concomitant]
     Dosage: UNK
     Dates: start: 20090528
  13. CIPROFLOXACIN [Concomitant]
     Dosage: UNK
     Dates: start: 20090629
  14. ZYRTEC [Concomitant]
     Indication: SEASONAL ALLERGY
     Dosage: UNK
     Dates: start: 20090101
  15. PRILOSEC [Concomitant]
     Indication: ABDOMINAL DISCOMFORT
     Dosage: UNK
     Dates: start: 20080101, end: 20090101
  16. METHYLPREDNISOLONE [Concomitant]
     Dosage: UNK
     Dates: start: 20090601

REACTIONS (5)
  - CHEST PAIN [None]
  - ANXIETY [None]
  - PULMONARY EMBOLISM [None]
  - ABDOMINAL PAIN [None]
  - PNEUMONIA [None]
